FAERS Safety Report 8491576-6 (Version None)
Quarter: 2012Q3

REPORT INFORMATION
  Report Type: 
  Country: None (occurrence: None)
  Receive Date: 20120706
  Receipt Date: 20120625
  Transmission Date: 20120928
  Serious: Yes (Hospitalization)
  Sender: FDA-Public Use
  Company Number: US-SANOFI-AVENTIS-2012SA045463

PATIENT
  Sex: Female

DRUGS (1)
  1. RILUTEK [Suspect]
     Dates: start: 20111001

REACTIONS (2)
  - LOSS OF CONSCIOUSNESS [None]
  - CARBON DIOXIDE INCREASED [None]
